FAERS Safety Report 6931285-5 (Version None)
Quarter: 2010Q3

REPORT INFORMATION
  Report Type: 
  Country: None (occurrence: None)
  Receive Date: 20100816
  Receipt Date: 20100806
  Transmission Date: 20110219
  Serious: Yes (Other)
  Sender: FDA-Public Use
  Company Number: 2010SP042786

PATIENT
  Age: 36 Year
  Sex: Female
  Weight: 85 kg

DRUGS (1)
  1. AVANZA (MIRTAZAPINE /01293201/) [Suspect]
     Indication: PRODUCT USED FOR UNKNOWN INDICATION
     Dosage: 30 MG;QD;PO
     Route: 048
     Dates: start: 20090909

REACTIONS (7)
  - BLEPHAROSPASM [None]
  - CONFUSIONAL STATE [None]
  - DISORIENTATION [None]
  - DYSCALCULIA [None]
  - DYSPHEMIA [None]
  - MEMORY IMPAIRMENT [None]
  - THINKING ABNORMAL [None]
